FAERS Safety Report 24082701 (Version 9)
Quarter: 2025Q2

REPORT INFORMATION
  Report Type: Report from Study
  Country: US (occurrence: US)
  Receive Date: 20240712
  Receipt Date: 20250520
  Transmission Date: 20250716
  Serious: Yes (Other)
  Sender: NOVARTIS
  Company Number: US-002147023-NVSC2024US141439

PATIENT
  Sex: Female

DRUGS (1)
  1. KESIMPTA [Suspect]
     Active Substance: OFATUMUMAB
     Indication: Relapsing multiple sclerosis
     Dosage: 20 MG, QMO
     Route: 058
     Dates: start: 20230401

REACTIONS (8)
  - Pelvic inflammatory disease [Unknown]
  - Abdominal pain [Unknown]
  - Injection site pain [Unknown]
  - Myalgia [Unknown]
  - Injection site haemorrhage [Unknown]
  - Injection site bruising [Unknown]
  - Brain fog [Not Recovered/Not Resolved]
  - Drug ineffective [Not Recovered/Not Resolved]
